FAERS Safety Report 15855497 (Version 1)
Quarter: 2019Q1

REPORT INFORMATION
  Report Type: Spontaneous
  Country: FR (occurrence: FR)
  Receive Date: 20190122
  Receipt Date: 20190122
  Transmission Date: 20190417
  Serious: Yes (Other)
  Sender: FDA-Public Use
  Company Number: PHHY2019FR011389

PATIENT
  Age: 61 Year
  Sex: Female

DRUGS (4)
  1. CICLOSPORINE [Suspect]
     Active Substance: CYCLOSPORINE
     Indication: TRANSPLANT REJECTION
     Dosage: 6 GTT, UNK
     Route: 047
     Dates: start: 20171120
  2. AZOPT [Suspect]
     Active Substance: BRINZOLAMIDE
     Indication: OCULAR HYPERTENSION
     Dosage: 2 DF, (2 UG/LITRE)
     Route: 047
     Dates: start: 2018
  3. DEXAFREE [Suspect]
     Active Substance: DEXAMETHASONE SODIUM PHOSPHATE
     Indication: TRANSPLANT REJECTION
     Dosage: 6 GTT, UNK
     Route: 047
     Dates: start: 2018
  4. LUMIGAN [Suspect]
     Active Substance: BIMATOPROST
     Indication: INTRAOCULAR PRESSURE INCREASED
     Dosage: 2 GTT, UNK
     Route: 047
     Dates: start: 2018, end: 20181127

REACTIONS (2)
  - Retinal oedema [Recovering/Resolving]
  - Visual impairment [Recovering/Resolving]

NARRATIVE: CASE EVENT DATE: 201809
